FAERS Safety Report 20885433 (Version 2)
Quarter: 2022Q4

REPORT INFORMATION
  Report Type: Other
  Country: CA (occurrence: None)
  Receive Date: 20220527
  Receipt Date: 20221122
  Transmission Date: 20230113
  Serious: Yes (Hospitalization, Other)
  Sender: FDA-Public Use
  Company Number: CA-ROCHE-3105276

PATIENT
  Sex: Female

DRUGS (2)
  1. OCREVUS [Suspect]
     Active Substance: OCRELIZUMAB
     Indication: Primary progressive multiple sclerosis
     Dosage: THEN 600 MG EVERY 6 MONTH
     Route: 042
     Dates: start: 20200106
  2. COVID-19 VACCINE [Concomitant]
     Dosage: 3 DOSES RECEIVED

REACTIONS (2)
  - COVID-19 pneumonia [Recovered/Resolved]
  - Lower respiratory tract infection [Unknown]
